FAERS Safety Report 5028562-4 (Version None)
Quarter: 2006Q2

REPORT INFORMATION
  Report Type: 
  Country: None (occurrence: None)
  Receive Date: 20060616
  Receipt Date: 20060616
  Transmission Date: 20061013
  Serious: No
  Sender: FDA-Public Use
  Company Number: None

PATIENT
  Age: 38 Year
  Sex: Male

DRUGS (1)
  1. ERY-TAB [Suspect]
     Indication: OTITIS MEDIA
     Dosage: ONE TABLET  BID  PO
     Route: 048
     Dates: start: 20060613, end: 20060615

REACTIONS (1)
  - SWELLING FACE [None]
